FAERS Safety Report 6137931-0 (Version None)
Quarter: 2009Q1

REPORT INFORMATION
  Report Type: 
  Country: None (occurrence: None)
  Receive Date: 20090331
  Receipt Date: 20090319
  Transmission Date: 20090719
  Serious: Yes (Hospitalization)
  Sender: FDA-Public Use
  Company Number: JP-PFIZER INC-2009169966

PATIENT

DRUGS (11)
  1. ZITHROMAX [Suspect]
     Indication: BRONCHITIS
     Dosage: 500 MG, 1X/DAY
     Route: 048
     Dates: start: 20090129, end: 20090131
  2. GARENOXACIN MESYLATE [Suspect]
     Indication: BRONCHITIS
     Dosage: UNK
     Route: 048
     Dates: start: 20090123, end: 20090126
  3. ASPIRIN [Concomitant]
     Indication: ANGINA PECTORIS
     Dosage: UNK
     Route: 048
     Dates: start: 20041019
  4. ROSUVASTATIN CALCIUM [Concomitant]
     Indication: HYPERLIPIDAEMIA
     Dosage: UNK
     Route: 048
     Dates: start: 20070106
  5. URINORM [Concomitant]
     Indication: GOUT
     Dosage: UNK
     Route: 048
     Dates: start: 20050611
  6. MICARDIS [Concomitant]
     Indication: HYPERTENSION
     Dosage: UNK
     Route: 048
     Dates: start: 20050319
  7. NITOROL R [Concomitant]
     Indication: ANGINA PECTORIS
     Route: 048
     Dates: start: 20041019
  8. URALYT [Concomitant]
     Indication: GOUT
     Dosage: UNK
     Route: 048
     Dates: start: 20050611
  9. MUCODYNE [Concomitant]
     Route: 048
     Dates: start: 20090123, end: 20090204
  10. BRUFEN [Concomitant]
     Route: 048
     Dates: start: 20090123, end: 20090201
  11. TRANSAMIN [Concomitant]
     Route: 048
     Dates: start: 20090129, end: 20090204

REACTIONS (1)
  - PNEUMONITIS [None]
